FAERS Safety Report 16474765 (Version 3)
Quarter: 2019Q3

REPORT INFORMATION
  Report Type: Report from Study
  Country: IL (occurrence: IL)
  Receive Date: 20190625
  Receipt Date: 20190726
  Transmission Date: 20191004
  Serious: Yes (Hospitalization)
  Sender: FDA-Public Use
  Company Number: IL-ACTELION-A-CH2019-192296

PATIENT
  Age: 73 Year
  Sex: Female

DRUGS (13)
  1. SILDENAFIL CITRATE. [Concomitant]
     Active Substance: SILDENAFIL CITRATE
  2. JANUET [Concomitant]
     Active Substance: METFORMIN HYDROCHLORIDE\SITAGLIPTIN PHOSPHATE
  3. LANTUS [Concomitant]
     Active Substance: INSULIN GLARGINE
  4. UPTRAVI [Suspect]
     Active Substance: SELEXIPAG
     Indication: PULMONARY ARTERIAL HYPERTENSION
     Dosage: 200 MCG, BID
     Route: 048
     Dates: start: 20190616
  5. LOSARTAN POTASSIUM AND HYDROCHLOROTHIAZIDE [Concomitant]
     Active Substance: HYDROCHLOROTHIAZIDE\LOSARTAN POTASSIUM
  6. FUSID [Concomitant]
  7. METOPROLOL. [Concomitant]
     Active Substance: METOPROLOL
  8. ELIQUIS [Concomitant]
     Active Substance: APIXABAN
  9. DIULO [Concomitant]
     Active Substance: METOLAZONE
  10. VASODIP [Concomitant]
     Active Substance: LERCANIDIPINE HYDROCHLORIDE
  11. SIMVACOR [Concomitant]
     Active Substance: SIMVASTATIN
  12. SPIRONOLACTONE. [Concomitant]
     Active Substance: SPIRONOLACTONE
  13. ALLORIL [Concomitant]

REACTIONS (5)
  - Asthenia [Recovered/Resolved]
  - Diarrhoea [Recovered/Resolved]
  - Vomiting [Recovered/Resolved]
  - Nausea [Recovered/Resolved]
  - Headache [Recovered/Resolved]

NARRATIVE: CASE EVENT DATE: 20190617
